FAERS Safety Report 7729959-1 (Version None)
Quarter: 2011Q3

REPORT INFORMATION
  Report Type: 
  Country: None (occurrence: None)
  Receive Date: 20110906
  Receipt Date: 20110831
  Transmission Date: 20111222
  Serious: Yes (Other)
  Sender: FDA-Public Use
  Company Number: BR-PFIZER INC-2011205598

PATIENT
  Age: 71 Year
  Sex: Female
  Weight: 75.9 kg

DRUGS (14)
  1. SUTENT [Suspect]
     Dosage: 50 MG, ALTERNATE DAY, CONTINUOUS
     Route: 048
     Dates: start: 20100805, end: 20101216
  2. PROPRANOLOL [Concomitant]
     Dosage: 40 MG, 1X/DAY IN THE MORNING
     Route: 048
  3. AMBROXOL [Concomitant]
     Dosage: 60 MG, 2X/DAY
     Route: 048
     Dates: start: 20101216, end: 20101223
  4. AMBROXOL [Concomitant]
     Dosage: 60 MG, 2X/DAY
     Dates: start: 20100902, end: 20100909
  5. SUTENT [Suspect]
     Indication: RENAL CELL CARCINOMA
     Dosage: 50 MG, 1X/DAY
     Route: 048
     Dates: start: 20100709, end: 20100805
  6. METOCLOPRAMIDE [Concomitant]
     Dosage: 10 MG, 4X/DAY SOS
     Route: 048
     Dates: start: 20100709, end: 20100809
  7. SUTENT [Suspect]
     Dosage: 50 MG, ALTERNATE DAYS FOR 2 WEEKS FOLLOWED BY 2 WEEKS WITHOUT MEDICINE
     Route: 048
     Dates: start: 20101216
  8. OMEPRAZOLE [Concomitant]
     Dosage: 20 MG, 2X/DAY
     Route: 048
     Dates: end: 20100809
  9. METHYLDOPA [Concomitant]
     Dosage: 250 MG, 2X/DAY
     Route: 048
     Dates: end: 20101216
  10. NISTATIN [Concomitant]
     Indication: MOUTH INJURY
     Dosage: 10 ML, 2X/DAY
     Route: 048
     Dates: start: 20100902, end: 20100912
  11. METHYLDOPA [Concomitant]
     Dosage: 500 MG, 2X/DAY
     Route: 048
     Dates: start: 20101216
  12. CODEINE PHOSPHATE AND ACETAMINOPHEN [Concomitant]
     Dosage: [PARACETAMOL 500MG] / [CODEIN 30MG], EVERY 6 HOURS SOS
     Dates: start: 20100709
  13. OMEPRAZOLE [Concomitant]
     Dosage: 20 MG, 2X/DAY
     Route: 048
     Dates: start: 20101216, end: 20110116
  14. NISTATIN [Concomitant]
     Dosage: 10 ML, 2X/DAY
     Route: 048
     Dates: start: 20101216, end: 20101226

REACTIONS (5)
  - SCAR [None]
  - ASTHENIA [None]
  - NEUTROPHIL COUNT DECREASED [None]
  - PALMAR-PLANTAR ERYTHRODYSAESTHESIA SYNDROME [None]
  - HYPERKERATOSIS [None]
